FAERS Safety Report 24110675 (Version 3)
Quarter: 2024Q3

REPORT INFORMATION
  Report Type: Spontaneous
  Country: IE (occurrence: IE)
  Receive Date: 20240718
  Receipt Date: 20240813
  Transmission Date: 20241017
  Serious: Yes (Life-Threatening, Hospitalization, Other)
  Sender: NOVARTIS
  Company Number: None

PATIENT
  Age: 32 Year
  Sex: Male

DRUGS (31)
  1. CYCLOSPORINE [Suspect]
     Active Substance: CYCLOSPORINE
     Indication: Product used for unknown indication
     Dosage: 50 MG, Q12H
     Route: 065
  2. ALKERAN [Suspect]
     Active Substance: MELPHALAN
     Indication: Bone marrow conditioning regimen
     Dosage: BEAM CONSOLIDATION REGIMEN
     Route: 065
  3. ADRIAMYCIN [Suspect]
     Active Substance: DOXORUBICIN HYDROCHLORIDE
     Indication: Hodgkin^s disease stage IV
     Dosage: UNK, CYCLIC, ABVD REGIMEN AND BEACOPP REGIMEN ABVD REGIMEN; 2 CYCLES. BEACOPP REGIMEN; 2 CYCLE
     Route: 065
  4. ADRIAMYCIN [Suspect]
     Active Substance: DOXORUBICIN HYDROCHLORIDE
     Dosage: BEACOPP REGIMEN
     Route: 065
  5. SULFAMETHOXAZOLE\TRIMETHOPRIM [Suspect]
     Active Substance: SULFAMETHOXAZOLE\TRIMETHOPRIM
     Indication: Acanthamoeba infection
     Dosage: UNK
     Route: 065
  6. CARMUSTINE [Suspect]
     Active Substance: CARMUSTINE
     Indication: Bone marrow conditioning regimen
     Dosage: UNK (BEAM CONSOLIDATION REGIMEN)
     Route: 065
  7. PREDNISOLONE [Suspect]
     Active Substance: PREDNISOLONE
     Indication: Graft versus host disease in skin
     Dosage: BEACOPP REGIMEN
     Route: 065
  8. PREDNISOLONE [Suspect]
     Active Substance: PREDNISOLONE
     Indication: Hodgkin^s disease stage IV
     Dosage: 10 MILLIGRAM, QD  (FOR SKIN GRAFT VERSUS HOST DISEASE BEACOPP REGIMEN; 2 CYCLES)
     Route: 065
  9. PREDNISOLONE [Suspect]
     Active Substance: PREDNISOLONE
     Indication: Graft versus host disease
     Dosage: UNK
     Route: 065
  10. PREDNISOLONE [Suspect]
     Active Substance: PREDNISOLONE
     Route: 065
  11. ALEMTUZUMAB [Suspect]
     Active Substance: ALEMTUZUMAB
     Indication: Bone marrow conditioning regimen
     Dosage: UNK (CONDITIONING REGIMEN)
     Route: 065
  12. BLEOMYCIN [Suspect]
     Active Substance: BLEOMYCIN SULFATE
     Indication: Hodgkin^s disease stage IV
     Dosage: ABVD REGIMEN; 2 CYCLES
     Route: 065
  13. BLEOMYCIN [Suspect]
     Active Substance: BLEOMYCIN SULFATE
     Dosage: BEACOPP REGIMEN; 2 CYCLES
     Route: 065
  14. BLEOMYCIN [Suspect]
     Active Substance: BLEOMYCIN SULFATE
     Dosage: UNK
     Route: 065
  15. BLEOMYCIN [Suspect]
     Active Substance: BLEOMYCIN SULFATE
     Dosage: UNK, CYCLIC
     Route: 065
  16. PROCARBAZINE [Suspect]
     Active Substance: PROCARBAZINE
     Indication: Hodgkin^s disease stage IV
     Dosage: UNK UNK, CYCLIC (BEACOPP REGIMEN; 2 CYCLES)
     Route: 065
  17. ONCOVIN [Suspect]
     Active Substance: VINCRISTINE SULFATE
     Indication: Hodgkin^s disease stage IV
     Dosage: UNK UNK, CYCLIC (BEACOPP REGIMEN; 2 CYCLES)
     Route: 065
  18. BRENTUXIMAB VEDOTIN [Suspect]
     Active Substance: BRENTUXIMAB VEDOTIN
     Indication: Hodgkin^s disease stage IV
     Dosage: UNK
     Route: 065
  19. ETOPOSIDE [Suspect]
     Active Substance: ETOPOSIDE
     Indication: Bone marrow conditioning regimen
     Dosage: (BEACOPP REGIMEN; 2 CYCLES, ICE REGIMEN; 3 CYCLES AND BEAM CONSOLIDATION REGIMEN) UNK
     Route: 065
  20. ETOPOSIDE [Suspect]
     Active Substance: ETOPOSIDE
     Indication: Hodgkin^s disease stage IV
  21. CARBOPLATIN [Suspect]
     Active Substance: CARBOPLATIN
     Indication: Hodgkin^s disease stage IV
     Dosage: UNK, CYCLIC (ICE REGIMEN; 3 CYCLES)
     Route: 065
  22. IFOSFAMIDE [Suspect]
     Active Substance: IFOSFAMIDE
     Indication: Hodgkin^s disease stage IV
     Dosage: UNK
     Route: 065
  23. DACARBAZINE [Suspect]
     Active Substance: DACARBAZINE
     Indication: Hodgkin^s disease stage IV
     Dosage: UNK, CYCLIC (ABVD REGIMEN, 2 CYCLES)
     Route: 065
  24. CYCLOPHOSPHAMIDE [Suspect]
     Active Substance: CYCLOPHOSPHAMIDE
     Indication: Hodgkin^s disease stage IV
     Dosage: UNK UNK, CYCLIC ((BEACOPP REGIMEN; 2 CYCLES))
     Route: 065
  25. CYTARABINE [Suspect]
     Active Substance: CYTARABINE
     Indication: Bone marrow conditioning regimen
     Dosage: BEAM CONSOLIDATION REGIMEN
     Route: 065
  26. VINBLASTINE [Suspect]
     Active Substance: VINBLASTINE
     Indication: Hodgkin^s disease stage IV
     Dosage: UNK UNK, CYCLIC (ABVD REGIMEN; 2 CYCLES)
     Route: 065
  27. ATOVAQUONE [Concomitant]
     Active Substance: ATOVAQUONE
     Indication: Product used for unknown indication
     Dosage: 750 MG, BID
     Route: 065
  28. ATOVAQUONE [Concomitant]
     Active Substance: ATOVAQUONE
     Dosage: 750 MILLIGRAM, Q12H
     Route: 065
  29. PENICILLIN V [Concomitant]
     Active Substance: PENICILLIN V
     Indication: Product used for unknown indication
     Dosage: 333 MG, BID
     Route: 065
  30. PENICILLIN V [Concomitant]
     Active Substance: PENICILLIN V
     Dosage: 333 MILLIGRAM, Q12H
     Route: 065
  31. VALACYCLOVIR HYDROCHLORIDE [Concomitant]
     Active Substance: VALACYCLOVIR HYDROCHLORIDE
     Indication: Product used for unknown indication
     Dosage: 500 MILLIGRAM, QD
     Route: 065

REACTIONS (9)
  - Meningoencephalitis amoebic [Recovering/Resolving]
  - Acanthamoeba infection [Recovering/Resolving]
  - Generalised tonic-clonic seizure [Recovering/Resolving]
  - Cerebral mass effect [Recovering/Resolving]
  - Vasogenic cerebral oedema [Recovering/Resolving]
  - Granuloma [Recovering/Resolving]
  - Parasitic encephalitis [Recovering/Resolving]
  - Brain injury [Recovering/Resolving]
  - Inappropriate antidiuretic hormone secretion [Recovering/Resolving]
